FAERS Safety Report 9351073 (Version 2)
Quarter: 2013Q2

REPORT INFORMATION
  Report Type: Spontaneous
  Country: JP (occurrence: JP)
  Receive Date: 20130617
  Receipt Date: 20130626
  Transmission Date: 20140414
  Serious: Yes (Other)
  Sender: FDA-Public Use
  Company Number: PHHY2013JP061039

PATIENT
  Age: 83 Year
  Sex: Male

DRUGS (6)
  1. EXELON PATCH [Suspect]
     Indication: DEMENTIA ALZHEIMER^S TYPE
     Dosage: 4.5 MG, DAILY
     Route: 062
     Dates: start: 20120612, end: 20120615
  2. EXELON PATCH [Suspect]
     Dosage: 2.25 MG (HALF PATCH OF 4.5 MG), DAILY
     Route: 062
     Dates: start: 20120616, end: 20120620
  3. EXELON PATCH [Suspect]
     Dosage: 4.5 MG, DAILY
     Route: 062
     Dates: start: 20120706
  4. EXELON PATCH [Suspect]
     Dosage: 9 MG, DAILY
     Route: 062
     Dates: start: 20120810
  5. EXELON PATCH [Suspect]
     Dosage: 13.5 MG, DAILY
     Route: 062
     Dates: start: 2012
  6. EXELON PATCH [Suspect]
     Dosage: 18 MG, DAILY
     Route: 062
     Dates: start: 20120928

REACTIONS (10)
  - Large intestine polyp [Recovered/Resolved]
  - Gastritis erosive [Recovered/Resolved]
  - Abdominal distension [Recovered/Resolved]
  - Application site pruritus [Recovered/Resolved]
  - Decreased appetite [Recovered/Resolved]
  - Nausea [Recovered/Resolved]
  - Vomiting [Recovered/Resolved]
  - Delirium [Recovered/Resolved]
  - Application site erythema [Recovered/Resolved]
  - Wrong technique in drug usage process [Recovered/Resolved]
